FAERS Safety Report 24647659 (Version 2)
Quarter: 2025Q1

REPORT INFORMATION
  Report Type: Spontaneous
  Country: US (occurrence: US)
  Receive Date: 20241121
  Receipt Date: 20250102
  Transmission Date: 20250408
  Serious: No
  Sender: GRANULES PHARMACEUTICALS INC
  Company Number: US-GRANULES-US-2024GRASPO00587

PATIENT

DRUGS (1)
  1. DEXMETHYLPHENIDATE HYDROCHLORIDE [Suspect]
     Active Substance: DEXMETHYLPHENIDATE HYDROCHLORIDE
     Indication: Product used for unknown indication
     Route: 065

REACTIONS (1)
  - Drug screen false positive [Unknown]
